FAERS Safety Report 26133008 (Version 1)
Quarter: 2025Q4

REPORT INFORMATION
  Report Type: Spontaneous
  Country: US (occurrence: US)
  Receive Date: 20251209
  Receipt Date: 20251209
  Transmission Date: 20260118
  Serious: No
  Sender: ROCHE
  Company Number: US-ROCHE-10000452025

PATIENT
  Sex: Male

DRUGS (3)
  1. TECENTRIQ HYBREZA [Suspect]
     Active Substance: ATEZOLIZUMAB\HYALURONIDASE-TQJS
     Indication: Small cell lung cancer extensive stage
     Dosage: STANDARD DOSE
     Route: 058
  2. TECENTRIQ [Suspect]
     Active Substance: ATEZOLIZUMAB
     Indication: Small cell lung cancer extensive stage
     Route: 042
  3. LURBINECTEDIN [Concomitant]
     Active Substance: LURBINECTEDIN
     Indication: Small cell lung cancer extensive stage

REACTIONS (2)
  - Hypoaesthesia [Unknown]
  - Stomatitis [Unknown]
